FAERS Safety Report 4627771-3 (Version None)
Quarter: 2005Q2

REPORT INFORMATION
  Report Type: 
  Country: None (occurrence: None)
  Receive Date: 20050401
  Receipt Date: 20030814
  Transmission Date: 20051028
  Serious: Yes (Hospitalization)
  Sender: FDA-Public Use
  Company Number: 5757

PATIENT
  Age: 80 Year
  Sex: Female

DRUGS (8)
  1. ACYCLOVIR [Suspect]
     Indication: HERPES ZOSTER
     Dosage: 200 MG BID PO
     Route: 048
     Dates: start: 20001201, end: 20001211
  2. ACETYL SALICYLIC ACID USP BAT [Concomitant]
  3. FAMOTIDINE [Concomitant]
  4. METOPROLOL TARTRATE [Concomitant]
  5. EBASTINE [Concomitant]
  6. DIGOXIN [Concomitant]
  7. CALCITRIOL [Concomitant]
  8. NITROGLYCERIN [Concomitant]

REACTIONS (6)
  - BLOOD PRESSURE INCREASED [None]
  - DEPRESSED LEVEL OF CONSCIOUSNESS [None]
  - DRUG TOXICITY [None]
  - SOMNOLENCE [None]
  - SPEECH DISORDER [None]
  - TREMOR [None]
